FAERS Safety Report 7764778-1 (Version None)
Quarter: 2011Q3

REPORT INFORMATION
  Report Type: 
  Country: None (occurrence: None)
  Receive Date: 20110921
  Receipt Date: 20110921
  Transmission Date: 20111222
  Serious: Yes (Death, Life-Threatening, Hospitalization)
  Sender: FDA-Public Use
  Company Number: None

PATIENT
  Age: 77 Year
  Sex: Female
  Weight: 56.699 kg

DRUGS (2)
  1. METHOTREXATE [Concomitant]
     Dosage: 20MG
     Route: 048
     Dates: start: 20100515, end: 20100715
  2. METHOTREXATE [Suspect]
     Indication: RHEUMATOID ARTHRITIS
     Dosage: 15MG
     Route: 048
     Dates: start: 20090520, end: 20100515

REACTIONS (11)
  - PNEUMOCYSTIS JIROVECI PNEUMONIA [None]
  - OXYGEN SATURATION DECREASED [None]
  - INTERSTITIAL LUNG DISEASE [None]
  - COUGH [None]
  - CANDIDIASIS [None]
  - SCAR [None]
  - ASTHENIA [None]
  - DYSPNOEA [None]
  - PYREXIA [None]
  - URINARY TRACT INFECTION [None]
  - STAPHYLOCOCCAL INFECTION [None]
